FAERS Safety Report 16966354 (Version 1)
Quarter: 2019Q4

REPORT INFORMATION
  Report Type: Spontaneous
  Country: KR (occurrence: KR)
  Receive Date: 20191028
  Receipt Date: 20191028
  Transmission Date: 20200122
  Serious: Yes (Other)
  Sender: FDA-Public Use
  Company Number: KR-SCILEX PHARMACEUTICALS INC.-2019SCX00077

PATIENT
  Age: 42 Year
  Sex: Female

DRUGS (2)
  1. LIDOCAINE. [Suspect]
     Active Substance: LIDOCAINE
     Dosage: ^REPEATEDLY REPRODUCED AFTER INTRADERMAL INJECTION OF 2% LIDOCAINE^
     Route: 023
  2. LIDOCAINE. [Suspect]
     Active Substance: LIDOCAINE
     Indication: DENTAL CARE
     Dosage: [INITIAL DOSE NOT SPECIFIED]
     Route: 065

REACTIONS (1)
  - Paralysis [Recovered/Resolved]
